FAERS Safety Report 7992707-4 (Version None)
Quarter: 2011Q4

REPORT INFORMATION
  Report Type: 
  Country: None (occurrence: None)
  Receive Date: 20111219
  Receipt Date: 20101106
  Transmission Date: 20120403
  Serious: No
  Sender: FDA-Public Use
  Company Number: GB-ASTRAZENECA-2010SE53357

PATIENT
  Age: 72 Year
  Sex: Female

DRUGS (4)
  1. CRESTOR [Suspect]
     Indication: HYPERCHOLESTEROLAEMIA
     Route: 048
     Dates: start: 20060101
  2. METOPROLOL [Concomitant]
     Indication: HYPERTENSION
  3. NORCREST [Concomitant]
     Indication: HYPERTENSION
  4. ASPIRIN [Concomitant]

REACTIONS (3)
  - ARTHRALGIA [None]
  - MUSCULAR WEAKNESS [None]
  - ARTHROPATHY [None]
